FAERS Safety Report 9973467 (Version 1)
Quarter: 2014Q1

REPORT INFORMATION
  Report Type: Spontaneous
  Country: PL (occurrence: PL)
  Receive Date: 20140306
  Receipt Date: 20140306
  Transmission Date: 20141002
  Serious: Yes (Life-Threatening, Hospitalization)
  Sender: FDA-Public Use
  Company Number: PL-BAXTER-2014BAX010444

PATIENT
  Age: 1 Year
  Sex: Female
  Weight: 11.9 kg

DRUGS (1)
  1. INJECTIO GLUCOSI 5% ET NATRII CHLORATI 0.9% 2:1 BAXTER [Suspect]
     Indication: DEHYDRATION
     Route: 041
     Dates: start: 20140119, end: 20140119

REACTIONS (4)
  - Cough [Recovered/Resolved]
  - Erythema [Recovered/Resolved]
  - Livedo reticularis [Recovered/Resolved]
  - Asthenia [Recovered/Resolved]
